FAERS Safety Report 9473902 (Version 1)
Quarter: 2013Q3

REPORT INFORMATION
  Report Type: Spontaneous
  Country: US (occurrence: US)
  Receive Date: 20130823
  Receipt Date: 20130823
  Transmission Date: 20140515
  Serious: No
  Sender: FDA-Public Use
  Company Number: US-BRISTOL-MYERS SQUIBB COMPANY-17115973

PATIENT
  Age: 69 Year
  Sex: Male
  Weight: 117.91 kg

DRUGS (16)
  1. SPRYCEL [Suspect]
     Indication: CHRONIC MYELOID LEUKAEMIA
     Route: 048
     Dates: start: 20121011
  2. ANDROGEL [Concomitant]
  3. ACETYLSALICYLIC ACID [Concomitant]
  4. ATENOLOL [Concomitant]
  5. ATORVASTATIN [Concomitant]
  6. BUPROPION [Concomitant]
  7. CLOPIDOGREL BISULFATE [Concomitant]
  8. FLUOXETINE [Concomitant]
  9. HUMULIN [Concomitant]
  10. LANTUS [Concomitant]
  11. METFORMIN [Concomitant]
  12. NEXIUM [Concomitant]
  13. NIFEDIPINE [Concomitant]
  14. NOVOLOG [Concomitant]
  15. QUINAPRIL [Concomitant]
  16. WELCHOL [Concomitant]

REACTIONS (2)
  - Dyspnoea [Unknown]
  - Anxiety [Unknown]
